FAERS Safety Report 6040478-3 (Version None)
Quarter: 2009Q1

REPORT INFORMATION
  Report Type: 
  Country: None (occurrence: None)
  Receive Date: 20090116
  Receipt Date: 20080314
  Transmission Date: 20090719
  Serious: No
  Sender: FDA-Public Use
  Company Number: US-BRISTOL-MYERS SQUIBB COMPANY-14116495

PATIENT
  Age: 55 Year
  Sex: Female
  Weight: 91 kg

DRUGS (4)
  1. ABILIFY [Suspect]
     Dosage: INTERRUPTED AND RESTARTED WITH 15MG DOSE.
  2. DEPAKOTE [Concomitant]
  3. COGENTIN [Concomitant]
  4. LEXAPRO [Concomitant]

REACTIONS (2)
  - TARDIVE DYSKINESIA [None]
  - WHITE BLOOD CELL COUNT DECREASED [None]
